FAERS Safety Report 12915644 (Version 1)
Quarter: 2016Q4

REPORT INFORMATION
  Report Type: Spontaneous
  Country: US (occurrence: US)
  Receive Date: 20161106
  Receipt Date: 20161106
  Transmission Date: 20170207
  Serious: No
  Sender: FDA-Public Use
  Company Number: US-RELYPSA-RLY2016003116

PATIENT
  Sex: Male

DRUGS (16)
  1. EPOGEN [Concomitant]
     Active Substance: ERYTHROPOIETIN
  2. TUMS [Concomitant]
     Active Substance: CALCIUM CARBONATE
  3. METAMUCIL [Concomitant]
     Active Substance: PLANTAGO SEED
  4. ASPIRIN. [Concomitant]
     Active Substance: ASPIRIN
  5. DIALYVITE [Concomitant]
     Active Substance: ASCORBIC ACID\BIOTIN\CALCIUM PANTOTHENATE\COBALAMIN\FOLIC ACID\NIACINAMIDE\PYRIDOXINE HYDROCHLORIDE\RIBOFLAVIN\THIAMINE MONONITRATE
  6. TYLENOL 8 HR [Concomitant]
     Active Substance: ACETAMINOPHEN
  7. PROMETHAZINE HCL [Concomitant]
     Active Substance: PROMETHAZINE HYDROCHLORIDE
  8. LISINOPRIL. [Concomitant]
     Active Substance: LISINOPRIL
  9. VELTASSA [Suspect]
     Active Substance: PATIROMER
     Indication: HYPERKALAEMIA
     Dosage: 8.4 G, QD
     Route: 048
     Dates: start: 20160316
  10. VITAMIN D3 [Concomitant]
     Active Substance: CHOLECALCIFEROL
  11. TRAZODONE HYDROCHLORIDE. [Concomitant]
     Active Substance: TRAZODONE HYDROCHLORIDE
  12. PROPRANOLOL/HCTZ [Concomitant]
  13. PANTOPRAZOLE SODIUM. [Concomitant]
     Active Substance: PANTOPRAZOLE SODIUM
  14. CALCITRIOL. [Concomitant]
     Active Substance: CALCITRIOL
  15. VITAMIN D [Concomitant]
     Active Substance: CHOLECALCIFEROL
  16. HEPARIN SODIUM PORCINE [Concomitant]
     Active Substance: HEPARIN SODIUM

REACTIONS (1)
  - Blood potassium increased [Not Recovered/Not Resolved]
